FAERS Safety Report 6524036-X (Version None)
Quarter: 2009Q4

REPORT INFORMATION
  Report Type: 
  Country: None (occurrence: None)
  Receive Date: 20091231
  Receipt Date: 20091221
  Transmission Date: 20100525
  Serious: Yes (Hospitalization)
  Sender: FDA-Public Use
  Company Number: PHHY2009AU57151

PATIENT
  Sex: Male

DRUGS (3)
  1. CLOZARIL [Suspect]
     Indication: SCHIZOPHRENIA
     Dosage: 750 MG, UNK
     Route: 048
     Dates: start: 19960109, end: 20091201
  2. VALPROATE SODIUM [Suspect]
     Indication: SCHIZOAFFECTIVE DISORDER
     Dosage: 100 MG, UNK
  3. FLUOXETINE [Concomitant]
     Indication: SCHIZOAFFECTIVE DISORDER
     Dosage: 40 MG, UNK

REACTIONS (1)
  - OVERDOSE [None]
